FAERS Safety Report 16009447 (Version 1)
Quarter: 2019Q1

REPORT INFORMATION
  Report Type: Spontaneous
  Country: ES (occurrence: ES)
  Receive Date: 20190225
  Receipt Date: 20190225
  Transmission Date: 20190418
  Serious: Yes (Disabling)
  Sender: FDA-Public Use
  Company Number: ES-TEVA-2019-ES-1015072

PATIENT
  Age: 81 Year
  Sex: Male

DRUGS (6)
  1. ACIDO ACETILSALICILICO PENSA 100 MG COMPRIMIDOS GASTRORRESISTENTES EFG [Concomitant]
     Indication: CARDIOVASCULAR EVENT PROPHYLAXIS
  2. SIMVASTATINA NORMON 20 MG COMPRIMIDOS RECUBIERTOS CON PEL?CULA EFG, 50 [Concomitant]
     Indication: HYPERCHOLESTEROLAEMIA
  3. ACIDO ZOLEDRONICO ACTAVIS 4 MG/5 ML CONCENTRADO PARA SOLUCION PARA PER [Suspect]
     Active Substance: ZOLEDRONIC ACID
     Indication: OSTEOPOROSIS
     Route: 042
     Dates: start: 20190118, end: 20190118
  4. FUROSEMIDA SANDOZ 40 MG COMPRIMIDOS EFG, 30 COMPRIMIDOS [Concomitant]
     Indication: CARDIAC FAILURE
     Dosage: 40 MILLIGRAM DAILY;
  5. ENALAPRIL DAVUR 2.5 MG COMPRIMIDOS , 500 COMPRIMIDOS [Concomitant]
     Indication: HYPERTENSION
     Dosage: 2.5 MILLIGRAM DAILY;
     Route: 048
  6. BISOPROLOL NORMON 2,5 MG COMPRIMIDOS RECUBIERTOS CON PELICULA EFG , 28 [Concomitant]
     Active Substance: BISOPROLOL
     Indication: CARDIAC FAILURE

REACTIONS (3)
  - Arthralgia [Recovered/Resolved]
  - Cervix carcinoma recurrent [Recovered/Resolved]
  - Bone pain [Recovered/Resolved]

NARRATIVE: CASE EVENT DATE: 20190120
